FAERS Safety Report 5008576-0 (Version None)
Quarter: 2006Q2

REPORT INFORMATION
  Report Type: 
  Country: None (occurrence: None)
  Receive Date: 20060522
  Receipt Date: 20060522
  Transmission Date: 20061013
  Serious: Yes (Disabling)
  Sender: FDA-Public Use
  Company Number: None

PATIENT
  Age: 59 Year
  Sex: Male
  Weight: 85.2762 kg

DRUGS (2)
  1. PRAVACHOL [Suspect]
     Indication: CORONARY ARTERY DISEASE
     Dates: start: 20060308, end: 20060410
  2. PRAVACHOL [Suspect]
     Indication: HYPERLIPIDAEMIA
     Dates: start: 20060308, end: 20060410

REACTIONS (2)
  - BLOOD CREATINE PHOSPHOKINASE INCREASED [None]
  - MYALGIA [None]
